FAERS Safety Report 8736426 (Version 2)
Quarter: 2012Q4

REPORT INFORMATION
  Report Type: Report from Study
  Country: US (occurrence: US)
  Receive Date: 20120822
  Receipt Date: 20121213
  Transmission Date: 20130627
  Serious: Yes (Other)
  Sender: FDA-Public Use
  Company Number: US-ROCHE-1095846

PATIENT
  Sex: Female
  Weight: 72.64 kg

DRUGS (2)
  1. VEMURAFENIB [Suspect]
     Indication: METASTATIC MALIGNANT MELANOMA
     Route: 048
     Dates: start: 201202, end: 201202
  2. VEMURAFENIB [Suspect]
     Route: 048
     Dates: start: 201203

REACTIONS (12)
  - Squamous cell carcinoma of skin [Not Recovered/Not Resolved]
  - Muscular weakness [Unknown]
  - Fatigue [Unknown]
  - Acne [Unknown]
  - Sensory disturbance [Not Recovered/Not Resolved]
  - Muscular weakness [Unknown]
  - Hemiparesis [Recovered/Resolved]
  - Rash [Not Recovered/Not Resolved]
  - Weight decreased [Not Recovered/Not Resolved]
  - Bone pain [Not Recovered/Not Resolved]
  - Faeces pale [Not Recovered/Not Resolved]
  - Skin ulcer [Not Recovered/Not Resolved]
